FAERS Safety Report 4755829-7 (Version None)
Quarter: 2005Q3

REPORT INFORMATION
  Report Type: 
  Country: None (occurrence: None)
  Receive Date: 20050830
  Receipt Date: 20050418
  Transmission Date: 20060218
  Serious: No
  Sender: FDA-Public Use
  Company Number: US-BRISTOL-MYERS SQUIBB COMPANY-12936233

PATIENT
  Age: 52 Year
  Sex: Female
  Weight: 67 kg

DRUGS (9)
  1. ERBITUX [Suspect]
     Indication: COLORECTAL CANCER METASTATIC
     Route: 042
     Dates: start: 20050301, end: 20050301
  2. BENADRYL [Concomitant]
     Indication: PREMEDICATION
     Route: 042
     Dates: start: 20050301, end: 20050301
  3. ANZEMET [Concomitant]
  4. ATROPINE [Concomitant]
  5. DECADRON [Concomitant]
  6. FLUOROURACIL [Concomitant]
     Route: 042
     Dates: start: 20050301, end: 20050301
  7. IRINOTECAN [Concomitant]
     Route: 042
     Dates: start: 20050301, end: 20050301
  8. LEUCOVORIN [Concomitant]
     Route: 042
     Dates: start: 20050301, end: 20050301
  9. SYNTHROID [Concomitant]

REACTIONS (1)
  - CONJUNCTIVITIS [None]
